FAERS Safety Report 7380463-2 (Version None)
Quarter: 2011Q1

REPORT INFORMATION
  Report Type: 
  Country: None (occurrence: None)
  Receive Date: 20110329
  Receipt Date: 20110302
  Transmission Date: 20110831
  Serious: Yes (Hospitalization, Other)
  Sender: FDA-Public Use
  Company Number: IL-JNJFOC-20110300505

PATIENT
  Sex: Male

DRUGS (7)
  1. HALDOL [Suspect]
     Indication: PRODUCT USED FOR UNKNOWN INDICATION
     Route: 065
  2. TRUVADA [Concomitant]
     Indication: HIV INFECTION
     Dosage: 245 MG TENOFOVIR / 200 MG EMTRICITABINE
     Route: 048
  3. SEROQUEL [Suspect]
     Indication: PRODUCT USED FOR UNKNOWN INDICATION
     Route: 065
  4. NORVIR [Concomitant]
     Indication: HIV INFECTION
     Route: 048
  5. CONCERTA [Suspect]
     Indication: ATTENTION DEFICIT/HYPERACTIVITY DISORDER
     Dosage: TREATMENT DURATION: FOR MORE THAN A YEAR
     Route: 048
  6. REYATAZ [Concomitant]
     Indication: HIV INFECTION
     Route: 048
  7. CANNABIS [Suspect]
     Indication: PRODUCT USED FOR UNKNOWN INDICATION
     Dosage: TREATMENT DURATION: FOR MORE THAN A YEAR
     Route: 065

REACTIONS (4)
  - PSYCHOTIC DISORDER [None]
  - WITHDRAWAL SYNDROME [None]
  - EXTRAPYRAMIDAL DISORDER [None]
  - TREATMENT NONCOMPLIANCE [None]
